FAERS Safety Report 11949285 (Version 1)
Quarter: 2016Q1

REPORT INFORMATION
  Report Type: Spontaneous
  Country: US (occurrence: None)
  Receive Date: 20160121
  Receipt Date: 20160121
  Transmission Date: 20160526
  Serious: Yes (Hospitalization)
  Sender: FDA-Public Use
  Company Number: None

PATIENT
  Age: 61 Year
  Sex: Female
  Weight: 99 kg

DRUGS (1)
  1. TEMOZOLOMIDE. [Suspect]
     Active Substance: TEMOZOLOMIDE
     Dates: end: 20151210

REACTIONS (5)
  - Condition aggravated [None]
  - Therapy cessation [None]
  - Deep vein thrombosis [None]
  - Intracranial mass [None]
  - Encephalopathy [None]

NARRATIVE: CASE EVENT DATE: 20160103
